FAERS Safety Report 17326377 (Version 4)
Quarter: 2020Q3

REPORT INFORMATION
  Report Type: Spontaneous
  Country: US (occurrence: US)
  Receive Date: 20200127
  Receipt Date: 20200818
  Transmission Date: 20201102
  Serious: Yes (Hospitalization)
  Sender: FDA-Public Use
  Company Number: US-PFIZER INC-2020030360

PATIENT
  Age: 53 Year
  Sex: Female
  Weight: 63 kg

DRUGS (9)
  1. FUROSEMIDE. [Concomitant]
     Active Substance: FUROSEMIDE
     Indication: PULMONARY HYPERTENSION
     Dosage: 160 MG, DAILY(40MG TABLET: 2?4 TABLETS TAKEN BY MOUTH DAILY?SHE USUALLY TAKES 4 TABLETS DAILY)
     Route: 048
     Dates: start: 2004
  2. ALBUTEROL [SALBUTAMOL] [Concomitant]
     Active Substance: ALBUTEROL
     Dosage: UNK, (2 PUFF EVERY 6 HOURS)
  3. FUROSEMIDE. [Concomitant]
     Active Substance: FUROSEMIDE
     Dosage: UNK, DAILY, (2?4 DAILY)
     Dates: start: 2004
  4. BOSENTAN. [Suspect]
     Active Substance: BOSENTAN
     Indication: PULMONARY HYPERTENSION
     Dosage: 125 MG, 2X/DAY(125MG TABLET TAKEN BY MOUTH TWICE DAILY)
     Route: 048
     Dates: start: 2004
  5. REVATIO [Suspect]
     Active Substance: SILDENAFIL CITRATE
     Indication: PULMONARY HYPERTENSION
     Dosage: 60 MG, 3X/DAY(3?20MG TABLET TAKEN BY MOUTH 3 TIMES DAILY)
     Route: 048
     Dates: start: 2010
  6. OXYGEN. [Concomitant]
     Active Substance: OXYGEN
     Indication: PULMONARY HYPERTENSION
     Dosage: 5 L, UNK (5L CONTINUOUS FLOW VIA NASAL CANNULA)
     Route: 045
     Dates: start: 2004
  7. SPIRONOLACTONE. [Concomitant]
     Active Substance: SPIRONOLACTONE
     Indication: PULMONARY HYPERTENSION
     Dosage: 50 MG, 2X/DAY(50MG TABLET TAKEN BY MOUTH TWICE DAILY)
     Route: 048
     Dates: start: 2004
  8. BOSENTAN. [Suspect]
     Active Substance: BOSENTAN
     Dosage: 250 MG, 2X/DAY, (2? 125 MG 2 X DAY)
     Dates: start: 2004
  9. POTASSIUM CHLORIDE. [Concomitant]
     Active Substance: POTASSIUM CHLORIDE
     Indication: PULMONARY HYPERTENSION
     Dosage: 20 MEQ, 3X/DAY
     Dates: start: 2004

REACTIONS (6)
  - Off label use [Recovered/Resolved]
  - Product use issue [Recovered/Resolved]
  - Dyspnoea [Recovered/Resolved]
  - Nervousness [Recovered/Resolved]
  - Gait disturbance [Not Recovered/Not Resolved]
  - Product dose omission issue [Recovered/Resolved]

NARRATIVE: CASE EVENT DATE: 2010
